FAERS Safety Report 17726475 (Version 2)
Quarter: 2020Q2

REPORT INFORMATION
  Report Type: Spontaneous
  Country: RU (occurrence: RU)
  Receive Date: 20200430
  Receipt Date: 20200610
  Transmission Date: 20200714
  Serious: Yes (Other)
  Sender: FDA-Public Use
  Company Number: RU-ASTRAZENECA-2020SE55994

PATIENT
  Age: 63 Year
  Sex: Female

DRUGS (3)
  1. MONTELAR [Concomitant]
  2. THYROID HORMONE [Concomitant]
  3. SYMBICORT [Suspect]
     Active Substance: BUDESONIDE\FORMOTEROL FUMARATE DIHYDRATE
     Indication: ASTHMA
     Dosage: 160UG\4.5UG, 120 DOSAGE UNKNOWN UNKNOWN
     Route: 055

REACTIONS (5)
  - Suspected COVID-19 [Unknown]
  - Device malfunction [Unknown]
  - Suspected counterfeit product [Unknown]
  - Drug ineffective [Unknown]
  - Asthma [Not Recovered/Not Resolved]

NARRATIVE: CASE EVENT DATE: 201909
